FAERS Safety Report 16972297 (Version 1)
Quarter: 2019Q4

REPORT INFORMATION
  Report Type: Report from Study
  Country: US (occurrence: US)
  Receive Date: 20191029
  Receipt Date: 20191029
  Transmission Date: 20200122
  Serious: Yes (Hospitalization)
  Sender: FDA-Public Use
  Company Number: PHHY2019US136242

PATIENT
  Age: 15 Year
  Sex: Female
  Weight: 51.5 kg

DRUGS (16)
  1. AMIKACIN. [Concomitant]
     Active Substance: AMIKACIN
     Indication: MYCOBACTERIUM ABSCESSUS INFECTION
     Dosage: UNK
     Route: 042
     Dates: start: 20181025, end: 20190606
  2. LINEZOLID. [Concomitant]
     Active Substance: LINEZOLID
     Dosage: UNK
     Route: 048
     Dates: start: 20190909, end: 20191023
  3. RIFAMPIN. [Concomitant]
     Active Substance: RIFAMPIN
     Dosage: UNK
     Route: 065
     Dates: start: 20191023
  4. LAMPRENE [Suspect]
     Active Substance: CLOFAZIMINE
     Indication: PNEUMONIA BACTERIAL
     Dosage: 50 MG, UNK
     Route: 048
     Dates: start: 20190531, end: 20190613
  5. LINEZOLID. [Concomitant]
     Active Substance: LINEZOLID
     Indication: MYCOBACTERIUM ABSCESSUS INFECTION
     Dosage: UNK
     Route: 048
     Dates: start: 20160914, end: 20190613
  6. AZITHROMYCIN ANHYDROUS. [Concomitant]
     Active Substance: AZITHROMYCIN ANHYDROUS
     Dosage: 500 MG, UNK
     Route: 065
     Dates: start: 20170203, end: 20190613
  7. RIFAMPIN. [Concomitant]
     Active Substance: RIFAMPIN
     Indication: ANTIBIOTIC THERAPY
     Dosage: 300 MG, UNK
     Route: 065
     Dates: start: 20170112, end: 20190106
  8. AZITHROMYCIN ANHYDROUS. [Concomitant]
     Active Substance: AZITHROMYCIN ANHYDROUS
     Indication: MYCOBACTERIUM ABSCESSUS INFECTION
     Dosage: UNK
     Route: 048
     Dates: start: 20170203
  9. AZITHROMYCIN ANHYDROUS. [Concomitant]
     Active Substance: AZITHROMYCIN ANHYDROUS
     Dosage: UNK
     Route: 048
     Dates: start: 20190909, end: 20191023
  10. LINEZOLID. [Concomitant]
     Active Substance: LINEZOLID
     Dosage: 600 MG, UNK
     Route: 065
     Dates: start: 20160914, end: 20190613
  11. TIGECYCLINE. [Concomitant]
     Active Substance: TIGECYCLINE
     Indication: PANCREATIC FAILURE
  12. ALBUTEROL. [Concomitant]
     Active Substance: ALBUTEROL
     Indication: BRONCHIAL DISORDER
     Dosage: 90 UG, UNK
     Route: 065
     Dates: start: 2014, end: 20190613
  13. LAMPRENE [Suspect]
     Active Substance: CLOFAZIMINE
     Indication: MYCOBACTERIUM ABSCESSUS INFECTION
     Dosage: 50 MG, UNK
     Route: 048
     Dates: start: 20191023
  14. LAMPRENE [Suspect]
     Active Substance: CLOFAZIMINE
     Indication: MYCOBACTERIUM AVIUM COMPLEX INFECTION
  15. AMIKACIN. [Concomitant]
     Active Substance: AMIKACIN
     Dosage: UNK
     Route: 048
     Dates: start: 20191023
  16. TIGECYCLINE. [Concomitant]
     Active Substance: TIGECYCLINE
     Indication: MYCOBACTERIUM ABSCESSUS INFECTION
     Dosage: UNK
     Route: 042
     Dates: start: 20160909

REACTIONS (2)
  - Rales [Not Recovered/Not Resolved]
  - Tachycardia [Unknown]

NARRATIVE: CASE EVENT DATE: 20190607
